FAERS Safety Report 25551352 (Version 1)
Quarter: 2025Q3

REPORT INFORMATION
  Report Type: Spontaneous
  Country: US (occurrence: US)
  Receive Date: 20250714
  Receipt Date: 20250714
  Transmission Date: 20251020
  Serious: Yes (Hospitalization)
  Sender: EXELIXIS
  Company Number: US-EXELIXIS-EXL-2025-009473

PATIENT
  Sex: Female

DRUGS (5)
  1. CABOMETYX [Suspect]
     Active Substance: CABOZANTINIB S-MALATE
     Indication: Renal cancer
  2. CEPHALEXIN [Concomitant]
     Active Substance: CEPHALEXIN
  3. INSULIN GLARGINE [Concomitant]
     Active Substance: INSULIN GLARGINE
  4. METFORMIN [Concomitant]
     Active Substance: METFORMIN HYDROCHLORIDE
  5. METOPROLOL [Concomitant]
     Active Substance: METOPROLOL

REACTIONS (6)
  - Seizure [Unknown]
  - Posterior reversible encephalopathy syndrome [Unknown]
  - Fatigue [Unknown]
  - Decreased appetite [Unknown]
  - Thrombocytosis [Unknown]
  - Anaemia [Unknown]
